FAERS Safety Report 8849988 (Version 1)
Quarter: 2012Q4

REPORT INFORMATION
  Report Type: 
  Country: US (occurrence: US)
  Receive Date: 20121019
  Receipt Date: 20121019
  Transmission Date: 20130627
  Serious: Yes (Hospitalization)
  Sender: FDA-Public Use
  Company Number: US-TARO-2012P1061150

PATIENT
  Age: 85 Year
  Sex: Female

DRUGS (2)
  1. WARFARIN SODIUM [Suspect]
  2. CEFTAROLINE FOSAMIL [Suspect]
     Indication: CELLULITIS
     Route: 042

REACTIONS (3)
  - Drug interaction [Recovered/Resolved]
  - Haemarthrosis [Recovered/Resolved]
  - International normalised ratio increased [None]
